FAERS Safety Report 18416282 (Version 2)
Quarter: 2020Q4

REPORT INFORMATION
  Report Type: Spontaneous
  Country: US (occurrence: US)
  Receive Date: 20201022
  Receipt Date: 20201217
  Transmission Date: 20210114
  Serious: No
  Sender: FDA-Public Use
  Company Number: US-ASTRAZENECA-2020SF32450

PATIENT
  Sex: Female
  Weight: 61.2 kg

DRUGS (1)
  1. SYMBICORT [Suspect]
     Active Substance: BUDESONIDE\FORMOTEROL FUMARATE DIHYDRATE
     Indication: ASTHMA
     Dosage: 80MCG/4.5MCG, TWO TIMES A DAY
     Route: 055

REACTIONS (4)
  - Intentional device misuse [Not Recovered/Not Resolved]
  - Multiple allergies [Unknown]
  - Device issue [Unknown]
  - Dysphonia [Unknown]
